FAERS Safety Report 5523624-7 (Version None)
Quarter: 2007Q4

REPORT INFORMATION
  Report Type: 
  Country: None (occurrence: None)
  Receive Date: 20071121
  Receipt Date: 20071109
  Transmission Date: 20080405
  Serious: Yes (Hospitalization, Disabling, Other)
  Sender: FDA-Public Use
  Company Number: GB-ASTRAZENECA-2007GB02276

PATIENT
  Age: 72 Year
  Sex: Male

DRUGS (3)
  1. ZOLADEX [Suspect]
     Dosage: TWO MONTHLY INJECTIONS
     Route: 058
     Dates: start: 20061005
  2. LACTULOSE [Concomitant]
     Route: 048
     Dates: start: 20071009
  3. PARACETAMOL [Concomitant]
     Dates: start: 20071009

REACTIONS (1)
  - MYOPATHY [None]
